FAERS Safety Report 18845794 (Version 1)
Quarter: 2021Q1

REPORT INFORMATION
  Report Type: Report from Study
  Country: US (occurrence: US)
  Receive Date: 20210203
  Receipt Date: 20210203
  Transmission Date: 20210419
  Serious: Yes (Hospitalization)
  Sender: FDA-Public Use
  Company Number: US-EXELIXIS-CABO-20033208

PATIENT
  Age: 66 Year
  Sex: Male

DRUGS (3)
  1. CABOMETYX [Suspect]
     Active Substance: CABOZANTINIB S-MALATE
     Indication: RENAL CANCER
     Dosage: 60 MG, QD
     Dates: start: 20200831, end: 20200915
  2. CABOMETYX [Suspect]
     Active Substance: CABOZANTINIB S-MALATE
     Dosage: 40 MG, QD
     Dates: start: 20201005, end: 20201014
  3. CABOMETYX [Suspect]
     Active Substance: CABOZANTINIB S-MALATE
     Dosage: 40 MG, QD
     Dates: start: 20201017

REACTIONS (8)
  - Pulmonary embolism [Unknown]
  - Localised infection [Unknown]
  - Diarrhoea [Not Recovered/Not Resolved]
  - Rash pruritic [Not Recovered/Not Resolved]
  - Dyspnoea exertional [Recovering/Resolving]
  - Asthenia [Recovering/Resolving]
  - Thrombosis [Unknown]
  - Fatigue [Not Recovered/Not Resolved]

NARRATIVE: CASE EVENT DATE: 20201013
